FAERS Safety Report 7936980-7 (Version None)
Quarter: 2011Q4

REPORT INFORMATION
  Report Type: 
  Country: None (occurrence: None)
  Receive Date: 20111123
  Receipt Date: 20111107
  Transmission Date: 20120403
  Serious: Yes (Life-Threatening, Hospitalization)
  Sender: FDA-Public Use
  Company Number: US-ROCHE-1015489

PATIENT
  Sex: Female

DRUGS (5)
  1. HERCEPTIN [Suspect]
     Indication: BREAST CANCER
     Dosage: LOADING DOSE
     Route: 042
     Dates: start: 20010521
  2. CYCLOPHOSPHAMIDE [Suspect]
     Indication: BREAST CANCER
     Route: 042
     Dates: start: 20010521
  3. PACLITAXEL [Suspect]
     Indication: BREAST CANCER
     Route: 042
     Dates: start: 20010521
  4. TAMOXIFEN CITRATE [Suspect]
     Indication: BREAST CANCER
     Route: 048
     Dates: start: 20010521
  5. DOXORUBICIN HCL [Suspect]
     Indication: BREAST CANCER
     Route: 042
     Dates: start: 20010521

REACTIONS (8)
  - ELECTROCARDIOGRAM ST-T CHANGE [None]
  - VENTRICULAR EXTRASYSTOLES [None]
  - MITRAL VALVE INCOMPETENCE [None]
  - EMBOLISM [None]
  - TRICUSPID VALVE INCOMPETENCE [None]
  - PULMONARY EMBOLISM [None]
  - UPPER RESPIRATORY TRACT INFECTION [None]
  - LYMPHADENOPATHY [None]
